FAERS Safety Report 22530064 (Version 1)
Quarter: 2023Q2

REPORT INFORMATION
  Report Type: Spontaneous
  Country: US (occurrence: US)
  Receive Date: 20230607
  Receipt Date: 20230607
  Transmission Date: 20230722
  Serious: Yes (Other)
  Sender: FDA-Public Use
  Company Number: US-MYLANLABS-2023M1059094

PATIENT
  Age: 65 Year
  Sex: Male

DRUGS (7)
  1. TRIAMCINOLONE [Suspect]
     Active Substance: TRIAMCINOLONE
     Indication: Retinopathy
     Dosage: UNK, Q3MONTHS, A TOTAL OF THREE DOSES WERE ADMINISTERED BILATERALLY 3 MONTHS APART AROUND MONTHS 3,
     Route: 031
  2. PREDNISONE [Concomitant]
     Active Substance: PREDNISONE
     Indication: Retinopathy
     Dosage: 5 MILLIGRAM, SYSTEMIC
     Route: 065
  3. PREDNISONE [Concomitant]
     Active Substance: PREDNISONE
     Dosage: 60 MILLIGRAM, SYSTEMIC
     Route: 065
  4. PRIVIGEN [Concomitant]
     Active Substance: HUMAN IMMUNOGLOBULIN G
     Indication: Retinopathy
     Dosage: UNK, MONTHLY
     Route: 042
  5. RITUXAN [Concomitant]
     Active Substance: RITUXIMAB
     Indication: Retinopathy
     Dosage: UNK, 6 MONTHS, 3 DOSES TOTAL
     Route: 065
  6. INTERFERON [Concomitant]
     Active Substance: INTERFERON
     Indication: Retinopathy
     Dosage: UNK
     Route: 042
  7. INTERFERON [Concomitant]
     Active Substance: INTERFERON
     Indication: Retinopathy
     Dosage: UNK
     Route: 058

REACTIONS (2)
  - Cataract [Recovered/Resolved]
  - Off label use [Unknown]
